FAERS Safety Report 8283089-1 (Version None)
Quarter: 2012Q1

REPORT INFORMATION
  Report Type: 
  Country: None (occurrence: None)
  Receive Date: 20120326
  Receipt Date: 20120120
  Transmission Date: 20120608
  Serious: Yes (Other)
  Sender: FDA-Public Use
  Company Number: 2012030877

PATIENT
  Sex: Female
  Weight: 61.2356 kg

DRUGS (5)
  1. HIZENTRA [Suspect]
  2. HIZENTRA [Suspect]
  3. HIZENTRA [Suspect]
     Indication: IMMUNODEFICIENCY
     Dosage: SEE IMAGE
     Route: 058
     Dates: start: 20120103
  4. HIZENTRA [Suspect]
     Indication: IMMUNODEFICIENCY
     Dosage: SEE IMAGE
     Route: 058
     Dates: start: 20120103
  5. HIZENTRA [Suspect]

REACTIONS (6)
  - MUSCULOSKELETAL STIFFNESS [None]
  - ANAPHYLACTIC REACTION [None]
  - HEADACHE [None]
  - FATIGUE [None]
  - INFLUENZA LIKE ILLNESS [None]
  - MYOSITIS [None]
